FAERS Safety Report 26048694 (Version 1)
Quarter: 2025Q4

REPORT INFORMATION
  Report Type: Spontaneous
  Country: US (occurrence: US)
  Receive Date: 20251115
  Receipt Date: 20251115
  Transmission Date: 20260117
  Serious: No
  Sender: ABBVIE
  Company Number: US-ABBVIE-6547533

PATIENT
  Age: 15 Year
  Sex: Female

DRUGS (1)
  1. HUMIRA [Suspect]
     Active Substance: ADALIMUMAB
     Indication: Rheumatoid arthritis
     Dosage: FORM STRENGTH UNITS: 80 MILLIGRAM, CITRATE FREE
     Route: 058

REACTIONS (3)
  - Product dose omission issue [Unknown]
  - Rheumatoid arthritis [Unknown]
  - Device issue [Not Recovered/Not Resolved]
